FAERS Safety Report 14309558 (Version 1)
Quarter: 2017Q4

REPORT INFORMATION
  Report Type: Spontaneous
  Country: JP (occurrence: JP)
  Receive Date: 20171220
  Receipt Date: 20171220
  Transmission Date: 20180321
  Serious: Yes (Other)
  Sender: FDA-Public Use
  Company Number: JP-FRESENIUS KABI-FK201711062

PATIENT
  Age: 70 Year
  Sex: Male

DRUGS (1)
  1. FUROSEMIDE (MANUFACTURER UNKNOWN) [Suspect]
     Active Substance: FUROSEMIDE
     Indication: CARDIAC FAILURE
     Route: 065

REACTIONS (3)
  - Drug effect decreased [Recovered/Resolved]
  - Vitamin B1 deficiency [Recovered/Resolved]
  - Shock [Recovered/Resolved]
